FAERS Safety Report 21790408 (Version 1)
Quarter: 2022Q4

REPORT INFORMATION
  Report Type: Report from Study
  Country: US (occurrence: US)
  Receive Date: 20221228
  Receipt Date: 20221228
  Transmission Date: 20230112
  Serious: Yes (Other)
  Sender: FDA-Public Use
  Company Number: US-CLOVIS ONCOLOGY-CLO-2022-000258

PATIENT
  Age: 73 Year
  Sex: Female

DRUGS (3)
  1. RUBRACA [Suspect]
     Active Substance: RUCAPARIB CAMSYLATE
     Indication: Ovarian cancer
     Dosage: 400 MILLIGRAM, BID
     Dates: start: 20220216, end: 20220430
  2. RUBRACA [Suspect]
     Active Substance: RUCAPARIB CAMSYLATE
     Dosage: 600 MILLIGRAM, BID
     Dates: start: 20220430
  3. RUBRACA [Suspect]
     Active Substance: RUCAPARIB CAMSYLATE
     Dosage: 600 MILLIGRAM, BID
     Route: 048
     Dates: start: 202202, end: 20220606

REACTIONS (8)
  - Malignant neoplasm progression [Unknown]
  - Joint stiffness [Not Recovered/Not Resolved]
  - Tremor [Unknown]
  - Headache [Recovered/Resolved]
  - Rash pruritic [Recovered/Resolved]
  - Fatigue [Recovering/Resolving]
  - Dysgeusia [Not Recovered/Not Resolved]
  - Product dose omission issue [Unknown]

NARRATIVE: CASE EVENT DATE: 20220201
